FAERS Safety Report 26187765 (Version 1)
Quarter: 2025Q4

REPORT INFORMATION
  Report Type: Report from Study
  Country: TR (occurrence: TR)
  Receive Date: 20251222
  Receipt Date: 20251222
  Transmission Date: 20260118
  Serious: Yes (Death, Other)
  Sender: BLUEPRINT MEDICINES
  Company Number: TR-Blueprint Medicines Corporation-2025-AER-02725

PATIENT
  Age: 59 Year
  Sex: Female

DRUGS (1)
  1. AVAPRITINIB [Suspect]
     Active Substance: AVAPRITINIB
     Indication: Product used for unknown indication
     Route: 065
     Dates: start: 20251015

REACTIONS (1)
  - Multiple organ dysfunction syndrome [Fatal]
